FAERS Safety Report 8310631-4 (Version None)
Quarter: 2012Q2

REPORT INFORMATION
  Report Type: 
  Country: None (occurrence: None)
  Receive Date: 20120425
  Receipt Date: 20120425
  Transmission Date: 20120825
  Serious: Yes (Other)
  Sender: FDA-Public Use
  Company Number: None

PATIENT
  Age: 36 Year
  Sex: Female
  Weight: 98.883 kg

DRUGS (1)
  1. DULERA [Suspect]
     Indication: ASTHMA
     Dosage: 2 PUFFS
     Route: 055
     Dates: start: 20120215, end: 20120220

REACTIONS (1)
  - CHEST PAIN [None]
